FAERS Safety Report 18668921 (Version 1)
Quarter: 2020Q4

REPORT INFORMATION
  Report Type: Spontaneous
  Country: US (occurrence: US)
  Receive Date: 20201227
  Receipt Date: 20201227
  Transmission Date: 20210114
  Serious: Yes (Other)
  Sender: FDA-Public Use
  Company Number: None

PATIENT
  Age: 59 Year
  Sex: Female
  Weight: 69.75 kg

DRUGS (32)
  1. DHEA [Concomitant]
     Active Substance: PRASTERONE
  2. GLYCINE. [Concomitant]
     Active Substance: GLYCINE
  3. MAGNESIUM MALATE. [Concomitant]
     Active Substance: MAGNESIUM MALATE
  4. MULTIMINERAL COMPLEX [Concomitant]
  5. CARNITINE [Concomitant]
     Active Substance: CARNITINE
  6. TESTOSTERONE. [Concomitant]
     Active Substance: TESTOSTERONE
  7. VITAMIN A [Concomitant]
     Active Substance: VITAMIN A
  8. COENZYME Q10 [Concomitant]
     Active Substance: DIETARY SUPPLEMENT\UBIDECARENONE
  9. LEVOTHYROXINE. [Concomitant]
     Active Substance: LEVOTHYROXINE
  10. KETOTIFEN [Concomitant]
     Active Substance: KETOTIFEN
  11. VITAMIN E [Concomitant]
     Active Substance: .ALPHA.-TOCOPHEROL
  12. HYDROCORTISONE. [Concomitant]
     Active Substance: HYDROCORTISONE
  13. ESTRADIOL. [Concomitant]
     Active Substance: ESTRADIOL
  14. CROMOLYN SODIUM. [Concomitant]
     Active Substance: CROMOLYN SODIUM
  15. MONTELUKAST [Concomitant]
     Active Substance: MONTELUKAST SODIUM
  16. METOPROLOL. [Concomitant]
     Active Substance: METOPROLOL
  17. RESVERATROL [Concomitant]
     Active Substance: DIETARY SUPPLEMENT\RESVERATROL
  18. RECLAST [Suspect]
     Active Substance: ZOLEDRONIC ACID
     Indication: OSTEOPOROSIS
     Dosage: ?          QUANTITY:1 INJECTION(S);?
     Route: 042
     Dates: start: 20201215, end: 20201215
  19. CLONIDINE. [Concomitant]
     Active Substance: CLONIDINE
  20. KUVAN [Concomitant]
     Active Substance: SAPROPTERIN DIHYDROCHLORIDE
  21. VITAMIN K [Concomitant]
     Active Substance: PHYTONADIONE
  22. VITAMIN B [Concomitant]
     Active Substance: VITAMIN B
  23. LYSINE [Concomitant]
     Active Substance: LYSINE
  24. ALA [Concomitant]
  25. GLUTATHIONE [Concomitant]
     Active Substance: GLUTATHIONE
  26. NICOTINAMIDE MONONUCLOTIDE [Concomitant]
  27. LIOTHYRONINE [Concomitant]
     Active Substance: LIOTHYRONINE
  28. ACYCLOVIR. [Concomitant]
     Active Substance: ACYCLOVIR
  29. VITAMIN C [Concomitant]
     Active Substance: ASCORBIC ACID
  30. VITAMIN D [Concomitant]
     Active Substance: VITAMIN D NOS
  31. MITOQ [Concomitant]
  32. CLOPIDOGREL [Concomitant]
     Active Substance: CLOPIDOGREL BISULFATE

REACTIONS (7)
  - Back pain [None]
  - Renal pain [None]
  - Blood pressure increased [None]
  - Adrenocortical insufficiency acute [None]
  - Nausea [None]
  - Chills [None]
  - Multi-organ disorder [None]

NARRATIVE: CASE EVENT DATE: 20201218
